FAERS Safety Report 25970931 (Version 1)
Quarter: 2025Q4

REPORT INFORMATION
  Report Type: Spontaneous
  Country: US (occurrence: None)
  Receive Date: 20251028
  Receipt Date: 20251028
  Transmission Date: 20260118
  Serious: Yes (Other)
  Sender: FDA-CTU
  Company Number: None

PATIENT
  Age: 60 Year
  Sex: Male
  Weight: 127.35 kg

DRUGS (1)
  1. REZDIFFRA [Suspect]
     Active Substance: RESMETIROM
     Dosage: 30 CPSULES AT BEDTIME ORAL
     Route: 048

REACTIONS (1)
  - Urticaria [None]

NARRATIVE: CASE EVENT DATE: 20250915
